FAERS Safety Report 6912656-X (Version None)
Quarter: 2010Q3

REPORT INFORMATION
  Report Type: 
  Country: None (occurrence: None)
  Receive Date: 20100806
  Receipt Date: 20080916
  Transmission Date: 20110219
  Serious: No
  Sender: FDA-Public Use
  Company Number: US-PFIZER INC-2008078651

PATIENT
  Sex: Female
  Weight: 68.181 kg

DRUGS (6)
  1. DETROL LA [Suspect]
     Indication: STRESS URINARY INCONTINENCE
     Route: 048
     Dates: start: 20060101
  2. DETROL LA [Suspect]
     Indication: HYPERTONIC BLADDER
  3. DILTIAZEM [Concomitant]
     Indication: ATRIAL FIBRILLATION
  4. WARFARIN SODIUM [Concomitant]
     Indication: ATRIAL FIBRILLATION
  5. PROVENTIL GENTLEHALER [Concomitant]
     Indication: LUNG DISORDER
  6. DIGOXIN [Concomitant]

REACTIONS (3)
  - ABDOMINAL PAIN [None]
  - DECREASED APPETITE [None]
  - WEIGHT DECREASED [None]
